APPROVED DRUG PRODUCT: MICONAZOLE NITRATE
Active Ingredient: MICONAZOLE NITRATE
Strength: 2%
Dosage Form/Route: CREAM;VAGINAL
Application: A074444 | Product #001
Applicant: SUN PHARMA CANADA INC
Approved: Jan 13, 1997 | RLD: No | RS: No | Type: OTC